FAERS Safety Report 4385451-6 (Version None)
Quarter: 2004Q2

REPORT INFORMATION
  Report Type: 
  Country: None (occurrence: None)
  Receive Date: 20040628
  Receipt Date: 20040621
  Transmission Date: 20050107
  Serious: Yes (Hospitalization)
  Sender: FDA-Public Use
  Company Number: PHBS2004BE08212

PATIENT
  Sex: Female

DRUGS (2)
  1. SANDOSTATIN [Suspect]
     Indication: CARCINOID SYNDROME
     Route: 058
  2. SANDOSTATIN LAR [Suspect]
     Indication: CARCINOID SYNDROME
     Route: 065

REACTIONS (1)
  - BONE SCAN ABNORMAL [None]
